FAERS Safety Report 9197937 (Version 2)
Quarter: 2013Q2

REPORT INFORMATION
  Report Type: Spontaneous
  Country: US (occurrence: US)
  Receive Date: 20130328
  Receipt Date: 20130409
  Transmission Date: 20140414
  Serious: Yes (Other)
  Sender: FDA-Public Use
  Company Number: US-TEVA-394626USA

PATIENT
  Sex: Male

DRUGS (3)
  1. DILTIAZEM [Suspect]
     Dosage: 120 MILLIGRAM DAILY;
  2. DILTIAZEM [Suspect]
     Dosage: 240 MILLIGRAM DAILY;
  3. DILTIAZEM [Suspect]
     Dosage: 480 MILLIGRAM DAILY; 2 IN THE MORNING AND TWO AT NIGHT

REACTIONS (5)
  - Thrombosis [Unknown]
  - Hypertension [Unknown]
  - Flushing [Unknown]
  - Tinnitus [Unknown]
  - Drug ineffective [Unknown]
